FAERS Safety Report 10042015 (Version 2)
Quarter: 2014Q1

REPORT INFORMATION
  Report Type: Spontaneous
  Country: HR (occurrence: HR)
  Receive Date: 20140327
  Receipt Date: 20140327
  Transmission Date: 20141002
  Serious: Yes (Hospitalization)
  Sender: FDA-Public Use
  Company Number: HR-BRISTOL-MYERS SQUIBB COMPANY-20300075

PATIENT
  Age: 34 Year
  Sex: Female

DRUGS (5)
  1. BYETTA [Suspect]
     Indication: TYPE 2 DIABETES MELLITUS
     Dosage: 2012-21MAY13: 10MCG; 2/D?21MAY13-07AUG13: 5MCG 2/D
     Route: 058
     Dates: start: 2012, end: 20130807
  2. AMARYL [Suspect]
     Indication: TYPE 2 DIABETES MELLITUS
     Dates: start: 2010, end: 20130521
  3. ATORVASTATIN [Concomitant]
     Indication: HYPERLIPIDAEMIA
     Dates: start: 2010, end: 20130807
  4. FENOFIBRATE [Concomitant]
     Indication: HYPERLIPIDAEMIA
     Dates: start: 2012, end: 20130807
  5. VOLTAREN RAPID [Concomitant]
     Indication: SCIATICA
     Dates: start: 2004, end: 20130807

REACTIONS (3)
  - Lip oedema [Unknown]
  - Maternal exposure during pregnancy [Recovered/Resolved]
  - Live birth [Unknown]
